FAERS Safety Report 5600851-1 (Version None)
Quarter: 2008Q1

REPORT INFORMATION
  Report Type: 
  Country: None (occurrence: None)
  Receive Date: 20080122
  Receipt Date: 20080122
  Transmission Date: 20080703
  Serious: Yes (Other)
  Sender: FDA-Public Use
  Company Number: None

PATIENT
  Age: 50 Year
  Sex: Female
  Weight: 56.246 kg

DRUGS (4)
  1. CARVEDILOL [Suspect]
     Indication: ISCHAEMIA
     Dosage: 6.25 MG ONE QD
  2. CARVEDILOL [Suspect]
     Indication: MYOPATHY
     Dosage: 6.25 MG ONE QD
  3. CARVEDILOL [Suspect]
     Indication: VENTRICULAR DYSFUNCTION
     Dosage: 6.25 MG ONE QD
  4. COREG [Concomitant]

REACTIONS (3)
  - BLOOD PRESSURE DECREASED [None]
  - CHEST DISCOMFORT [None]
  - SIMILAR REACTION ON PREVIOUS EXPOSURE TO DRUG [None]
